FAERS Safety Report 6600470-4 (Version None)
Quarter: 2010Q1

REPORT INFORMATION
  Report Type: 
  Country: None (occurrence: None)
  Receive Date: 20100223
  Receipt Date: 20100223
  Transmission Date: 20100710
  Serious: Yes (Hospitalization)
  Sender: FDA-Public Use
  Company Number: None

PATIENT
  Age: 67 Year
  Sex: Female
  Weight: 84.9 kg

DRUGS (1)
  1. LENALIDOMIDE [Suspect]
     Indication: COLON CANCER METASTATIC
     Dosage: 15 MG PO EACH DAY
     Route: 048
     Dates: start: 20100119, end: 20100129

REACTIONS (6)
  - CYSTITIS [None]
  - ESCHERICHIA INFECTION [None]
  - HAEMOGLOBIN ABNORMAL [None]
  - HYPOALBUMINAEMIA [None]
  - PLATELET COUNT ABNORMAL [None]
  - UROSEPSIS [None]
